FAERS Safety Report 15472437 (Version 2)
Quarter: 2018Q4

REPORT INFORMATION
  Report Type: Report from Study
  Country: US (occurrence: US)
  Receive Date: 20181008
  Receipt Date: 20181009
  Transmission Date: 20190205
  Serious: Yes (Hospitalization, Other)
  Sender: FDA-Public Use
  Company Number: US-ASTRAZENECA-2018SF25470

PATIENT
  Age: 40 Year
  Sex: Male
  Weight: 77.1 kg

DRUGS (23)
  1. PLAVIX [Concomitant]
     Active Substance: CLOPIDOGREL BISULFATE
     Indication: COAGULOPATHY
     Route: 048
     Dates: start: 2011
  2. METFORMIN [Concomitant]
     Active Substance: METFORMIN HYDROCHLORIDE
     Indication: DIABETES MELLITUS
     Route: 048
  3. SYMBICORT [Suspect]
     Active Substance: BUDESONIDE\FORMOTEROL FUMARATE DIHYDRATE
     Indication: CHRONIC OBSTRUCTIVE PULMONARY DISEASE
     Route: 055
  4. LOPERAMIDE [Concomitant]
     Active Substance: LOPERAMIDE
     Indication: DIARRHOEA
     Dosage: 2.0MG AS REQUIRED
     Route: 048
  5. LORAZEPAM. [Concomitant]
     Active Substance: LORAZEPAM
     Indication: ANXIETY
     Route: 048
  6. TRAMADOL. [Concomitant]
     Active Substance: TRAMADOL
     Indication: PAIN
     Route: 048
  7. ALLOPURINOL. [Concomitant]
     Active Substance: ALLOPURINOL
     Indication: ILL-DEFINED DISORDER
     Route: 048
  8. PANTOPRAZOLE [Concomitant]
     Active Substance: PANTOPRAZOLE
     Indication: GASTROOESOPHAGEAL REFLUX DISEASE
     Route: 048
  9. TIZANIDINE. [Concomitant]
     Active Substance: TIZANIDINE
     Indication: MUSCLE SPASMS
     Dosage: 2.0MG AS REQUIRED
     Route: 048
  10. TYLENOL [Concomitant]
     Active Substance: ACETAMINOPHEN
     Route: 048
  11. METOPROLOL. [Suspect]
     Active Substance: METOPROLOL
     Indication: HYPERTENSION
     Route: 048
  12. MECLIZINE HCL [Concomitant]
     Active Substance: MECLIZINE HYDROCHLORIDE
     Indication: DIZZINESS
     Dosage: 25.0MG AS REQUIRED
     Route: 048
  13. TAMSULOSIN [Concomitant]
     Active Substance: TAMSULOSIN
     Indication: PROSTATIC DISORDER
     Route: 048
  14. POTASSIUM [Concomitant]
     Active Substance: POTASSIUM
     Route: 048
  15. BUSPIRONE [Concomitant]
     Active Substance: BUSPIRONE HYDROCHLORIDE
     Indication: ANXIETY
     Route: 048
  16. LINZESS [Concomitant]
     Active Substance: LINACLOTIDE
     Indication: BOWEL MOVEMENT IRREGULARITY
     Route: 048
  17. ONDANSETRON [Concomitant]
     Active Substance: ONDANSETRON
     Indication: NAUSEA
     Route: 048
  18. LISINOPRIL. [Suspect]
     Active Substance: LISINOPRIL
     Indication: HYPERTENSION
     Route: 048
  19. OXYBUTYNIN. [Concomitant]
     Active Substance: OXYBUTYNIN CHLORIDE
     Indication: PROSTATE CANCER
     Route: 048
  20. POLYETHYLENE GLYCOL [Concomitant]
     Active Substance: POLYETHYLENE GLYCOLS
     Indication: GASTROINTESTINAL MOTILITY DISORDER
     Dosage: 17.0G AS REQUIRED
     Route: 048
  21. RANITIDINE. [Concomitant]
     Active Substance: RANITIDINE
     Indication: ABDOMINAL DISCOMFORT
     Route: 048
  22. SUCRALFATE. [Concomitant]
     Active Substance: SUCRALFATE
     Indication: ULCER
     Route: 048
  23. ATORVASTATIN [Concomitant]
     Active Substance: ATORVASTATIN
     Indication: BLOOD CHOLESTEROL
     Route: 048

REACTIONS (20)
  - Prostate cancer [Unknown]
  - Memory impairment [Unknown]
  - Chronic obstructive pulmonary disease [Unknown]
  - Atrioventricular block [Unknown]
  - Bowel movement irregularity [Unknown]
  - Hypertonic bladder [Unknown]
  - Condition aggravated [Unknown]
  - Hypertension [Unknown]
  - Vision blurred [Unknown]
  - Musculoskeletal discomfort [Unknown]
  - Diabetes mellitus [Unknown]
  - Arthritis [Unknown]
  - Thrombosis [Unknown]
  - Carotid artery occlusion [Unknown]
  - Cardiovascular disorder [Unknown]
  - Fatigue [Unknown]
  - Dysphonia [Unknown]
  - Muscle spasms [Unknown]
  - Limb discomfort [Unknown]
  - Product dose omission [Unknown]
